FAERS Safety Report 9386222 (Version 3)
Quarter: 2016Q1

REPORT INFORMATION
  Report Type: Spontaneous
  Country: AR (occurrence: AR)
  Receive Date: 20130708
  Receipt Date: 20160120
  Transmission Date: 20160526
  Serious: Yes (Other)
  Sender: FDA-Public Use
  Company Number: AR-AMGEN-ARGSP2013047347

PATIENT
  Age: 77 Year
  Sex: Female

DRUGS (2)
  1. ENBREL [Suspect]
     Active Substance: ETANERCEPT
     Dosage: 50 MG, WEEKLY
     Route: 065
  2. ENBREL [Suspect]
     Active Substance: ETANERCEPT
     Indication: RHEUMATOID ARTHRITIS
     Dosage: 40 MG, WEEKLY
     Route: 065
     Dates: start: 20120505

REACTIONS (7)
  - Pain in extremity [Not Recovered/Not Resolved]
  - Peripheral swelling [Not Recovered/Not Resolved]
  - Bronchitis [Recovered/Resolved]
  - Gait disturbance [Not Recovered/Not Resolved]
  - Arthralgia [Not Recovered/Not Resolved]
  - Intentional product misuse [Unknown]
  - Hip fracture [Not Recovered/Not Resolved]

NARRATIVE: CASE EVENT DATE: 2012
